FAERS Safety Report 8463808-1 (Version None)
Quarter: 2012Q2

REPORT INFORMATION
  Report Type: 
  Country: None (occurrence: None)
  Receive Date: 20120625
  Receipt Date: 20120621
  Transmission Date: 20120825
  Serious: No
  Sender: FDA-Public Use
  Company Number: US-BAYER-2012-062378

PATIENT
  Age: 69 Year
  Sex: Female
  Weight: 79 kg

DRUGS (4)
  1. ALEVE (CAPLET) [Suspect]
     Dosage: 2 U, BID
     Route: 048
     Dates: start: 19970101
  2. POTASSIUM ACETATE [Concomitant]
  3. NEXIUM [Concomitant]
  4. SINGULAIR [Concomitant]

REACTIONS (2)
  - NO ADVERSE EVENT [None]
  - DRUG INTERACTION [None]
